FAERS Safety Report 17228587 (Version 1)
Quarter: 2020Q1

REPORT INFORMATION
  Report Type: Spontaneous
  Country: US (occurrence: US)
  Receive Date: 20200103
  Receipt Date: 20200103
  Transmission Date: 20200409
  Serious: No
  Sender: FDA-Public Use
  Company Number: US-ASTRAZENECA-2019SF88323

PATIENT
  Sex: Male
  Weight: 49 kg

DRUGS (7)
  1. SYMBICORT [Suspect]
     Active Substance: BUDESONIDE\FORMOTEROL FUMARATE DIHYDRATE
     Route: 055
  2. MULTIVITAMIN [Concomitant]
     Active Substance: VITAMINS
  3. DALIRESP [Suspect]
     Active Substance: ROFLUMILAST
     Route: 048
     Dates: start: 2018, end: 20191221
  4. METOPROLOLOL [Concomitant]
     Indication: CARDIAC DISORDER
  5. PROAIR HFA [Concomitant]
     Active Substance: ALBUTEROL SULFATE
  6. PRAVASTATIN. [Concomitant]
     Active Substance: PRAVASTATIN
     Indication: BLOOD CHOLESTEROL
  7. IRON [Concomitant]
     Active Substance: IRON

REACTIONS (6)
  - Lung disorder [Unknown]
  - Heart rate irregular [Unknown]
  - Heart rate increased [Unknown]
  - Red blood cell abnormality [Unknown]
  - Weight decreased [Unknown]
  - Intentional product misuse [Unknown]
